FAERS Safety Report 24005671 (Version 1)
Quarter: 2024Q2

REPORT INFORMATION
  Report Type: Spontaneous
  Country: US (occurrence: None)
  Receive Date: 20240622
  Receipt Date: 20240622
  Transmission Date: 20240716
  Serious: Yes (Other)
  Sender: FDA-Public Use
  Company Number: None

PATIENT
  Age: 60 Year
  Sex: Female
  Weight: 60.75 kg

DRUGS (1)
  1. BRIMONIDINE [Suspect]
     Active Substance: BRIMONIDINE TARTRATE
     Indication: Glaucoma
     Dosage: 1 GTYT DROP TWICE A DAY ?
     Route: 047
     Dates: start: 20200808, end: 20201008

REACTIONS (2)
  - Rash [None]
  - Urticaria [None]

NARRATIVE: CASE EVENT DATE: 20200808
